FAERS Safety Report 12631801 (Version 2)
Quarter: 2016Q3

REPORT INFORMATION
  Report Type: Spontaneous
  Country: US (occurrence: US)
  Receive Date: 20160808
  Receipt Date: 20160808
  Transmission Date: 20161109
  Serious: No
  Sender: FDA-Public Use
  Company Number: US-BEH-2016061070

PATIENT
  Sex: Female
  Weight: 62 kg

DRUGS (17)
  1. ZOLOFT [Concomitant]
     Active Substance: SERTRALINE HYDROCHLORIDE
  2. EPIPEN [Concomitant]
     Active Substance: EPINEPHRINE
  3. CELEBREX [Concomitant]
     Active Substance: CELECOXIB
  4. DOXYCYCLINE. [Concomitant]
     Active Substance: DOXYCYCLINE
  5. CALCIUM + D [Concomitant]
     Active Substance: CALCIUM\VITAMIN D
  6. FLOVENT [Concomitant]
     Active Substance: FLUTICASONE PROPIONATE
  7. ALLEGRA [Concomitant]
     Active Substance: FEXOFENADINE HYDROCHLORIDE
  8. HIZENTRA [Suspect]
     Active Substance: HUMAN IMMUNOGLOBULIN G
     Indication: IMMUNODEFICIENCY COMMON VARIABLE
     Route: 058
  9. L-M-X [Concomitant]
  10. SYNTHROID [Concomitant]
     Active Substance: LEVOTHYROXINE SODIUM
  11. PRED FORTE [Concomitant]
     Active Substance: PREDNISOLONE ACETATE
  12. ZIRGAN [Concomitant]
     Active Substance: GANCICLOVIR
  13. FLAXSEED [Concomitant]
     Active Substance: FLAX SEED
  14. FLONASE [Concomitant]
     Active Substance: FLUTICASONE PROPIONATE
  15. LIDOCAINE/PRILOCAINE [Concomitant]
     Active Substance: LIDOCAINE\PRILOCAINE
  16. DIPHENHYDRAMINE. [Concomitant]
     Active Substance: DIPHENHYDRAMINE
  17. DAILY MULTIVITAMIN [Concomitant]
     Active Substance: VITAMINS

REACTIONS (1)
  - Sinusitis [Unknown]
